FAERS Safety Report 4416062-1 (Version None)
Quarter: 2004Q3

REPORT INFORMATION
  Report Type: 
  Country: None (occurrence: None)
  Receive Date: 20040730
  Receipt Date: 20040721
  Transmission Date: 20050211
  Serious: Yes (Hospitalization, Other)
  Sender: FDA-Public Use
  Company Number: 2004221761US

PATIENT
  Age: 83 Year
  Sex: Male
  Weight: 88 kg

DRUGS (18)
  1. BEXTRA [Suspect]
     Indication: PAIN IN EXTREMITY
     Dosage: 20 MG, QD, ORAL
     Route: 048
     Dates: start: 20040311, end: 20040317
  2. ACTOS [Suspect]
     Indication: DIABETES MELLITUS
     Dosage: 45 MG, QD,
     Dates: start: 20040311, end: 20040601
  3. DIGOXIN [Concomitant]
  4. VITAMIN C [Concomitant]
  5. E-VITAMIN [Concomitant]
  6. BETAPACE [Concomitant]
  7. ASPIRIN [Concomitant]
  8. VASOTEC [Concomitant]
  9. NEURONTIN [Concomitant]
  10. PLAVIX [Concomitant]
  11. PRAVACHOL [Concomitant]
  12. LASIX [Concomitant]
  13. K-DUR 10 [Concomitant]
  14. ELAVIL [Concomitant]
  15. MECLIZINE [Concomitant]
  16. SYNTHROID [Concomitant]
  17. VISTARIL [Concomitant]
  18. PLETAL [Concomitant]

REACTIONS (9)
  - CARDIAC FAILURE CONGESTIVE [None]
  - CONTUSION [None]
  - DERMATITIS ALLERGIC [None]
  - DRUG ERUPTION [None]
  - GASTROINTESTINAL DISORDER [None]
  - MELAENA [None]
  - PRURITUS [None]
  - RASH GENERALISED [None]
  - RASH MACULO-PAPULAR [None]
